FAERS Safety Report 9997410 (Version 2)
Quarter: 2014Q1

REPORT INFORMATION
  Report Type: Spontaneous
  Country: JP (occurrence: JP)
  Receive Date: 20140311
  Receipt Date: 20140319
  Transmission Date: 20141002
  Serious: Yes (Hospitalization)
  Sender: FDA-Public Use
  Company Number: JP-B.I. PHARMACEUTICALS,INC./RIDGEFIELD-2014-BI-09865NB

PATIENT
  Age: 78 Year
  Sex: Male
  Weight: 51.5 kg

DRUGS (4)
  1. PRAZAXA [Suspect]
     Indication: THROMBOSIS PROPHYLAXIS
     Dosage: 220 MG
     Route: 048
  2. ARTIST / CARVEDILOL [Concomitant]
     Indication: CARDIAC FAILURE CHRONIC
     Dosage: 5 MG
     Route: 048
  3. MEMARY / MEMANTINE HYDROCHLORIDE [Concomitant]
     Indication: DEMENTIA
     Dosage: 10 MG
     Route: 048
  4. SEROQUEL / QUETIAPINE FUMARATE [Concomitant]
     Indication: PSYCHIATRIC SYMPTOM
     Dosage: 75 MG
     Route: 048

REACTIONS (3)
  - Cardiac tamponade [Recovered/Resolved]
  - Renal function test abnormal [Unknown]
  - Activated partial thromboplastin time prolonged [Unknown]
